FAERS Safety Report 4545503-4 (Version None)
Quarter: 2005Q1

REPORT INFORMATION
  Report Type: 
  Country: None (occurrence: None)
  Receive Date: 20050103
  Receipt Date: 20041215
  Transmission Date: 20050727
  Serious: Yes (Hospitalization)
  Sender: FDA-Public Use
  Company Number: USA041286240

PATIENT
  Sex: Female

DRUGS (2)
  1. STRATTERA [Suspect]
  2. CLONIDINE [Concomitant]

REACTIONS (2)
  - INTENTIONAL MISUSE [None]
  - SUICIDE ATTEMPT [None]
